FAERS Safety Report 24411221 (Version 1)
Quarter: 2024Q4

REPORT INFORMATION
  Report Type: Spontaneous
  Country: LK (occurrence: LK)
  Receive Date: 20241008
  Receipt Date: 20241008
  Transmission Date: 20250115
  Serious: Yes (Death, Hospitalization)
  Sender: NOVAST
  Company Number: LK-NOVAST LABORATORIES INC.-2024NOV000306

PATIENT
  Sex: Male

DRUGS (1)
  1. NIFEDIPINE [Suspect]
     Active Substance: NIFEDIPINE
     Indication: Product used for unknown indication
     Dosage: UNK
     Route: 065

REACTIONS (1)
  - Toxicity to various agents [Fatal]
